FAERS Safety Report 7394051-5 (Version None)
Quarter: 2011Q2

REPORT INFORMATION
  Report Type: 
  Country: None (occurrence: None)
  Receive Date: 20110405
  Receipt Date: 20101028
  Transmission Date: 20111010
  Serious: Yes (Other)
  Sender: FDA-Public Use
  Company Number: US-AMGEN-QUU430322

PATIENT
  Age: 47 Year
  Sex: Male
  Weight: 97.6 kg

DRUGS (8)
  1. PREDNISONE [Concomitant]
     Dosage: UNK UNK, UNK
     Dates: start: 20100701
  2. CYCLOPHOSPHAMIDE [Concomitant]
     Dosage: UNK UNK, UNK
     Route: 042
     Dates: start: 20100701
  3. VINCRISTINE SULFATE [Concomitant]
     Dosage: UNK UNK, UNK
     Route: 042
     Dates: start: 20100701
  4. NEULASTA [Suspect]
     Indication: CHEMOTHERAPY
     Dosage: 6 MG, Q3WK
     Route: 058
     Dates: start: 20100721
  5. NEULASTA [Suspect]
     Dosage: 6 MG, Q3WK
     Route: 058
     Dates: start: 20100721
  6. RITUXIMAB [Concomitant]
     Dosage: UNK UNK, UNK
     Route: 042
     Dates: start: 20100701
  7. ETOPOSIDE [Concomitant]
     Dosage: UNK UNK, UNK
     Route: 042
     Dates: start: 20100701
  8. DOXORUBICIN HCL [Concomitant]
     Dosage: UNK UNK, UNK
     Route: 042
     Dates: start: 20100701

REACTIONS (1)
  - FEBRILE NEUTROPENIA [None]
